FAERS Safety Report 16881055 (Version 1)
Quarter: 2019Q4

REPORT INFORMATION
  Report Type: Spontaneous
  Country: US (occurrence: US)
  Receive Date: 20190807
  Receipt Date: 20190807
  Transmission Date: 20200122
  Serious: Yes (Hospitalization, Other)
  Sender: FDA-Public Use
  Company Number: None

PATIENT
  Age: 63 Year
  Sex: Male
  Weight: 81.65 kg

DRUGS (1)
  1. ALTACAINE [Suspect]
     Active Substance: TETRACAINE HYDROCHLORIDE
     Indication: CATARACT OPERATION
     Route: 047

REACTIONS (3)
  - Visual acuity reduced [None]
  - Pain [None]
  - Intraocular pressure increased [None]

NARRATIVE: CASE EVENT DATE: 20190612
